FAERS Safety Report 21034513 (Version 1)
Quarter: 2022Q3

REPORT INFORMATION
  Report Type: Spontaneous
  Country: DE (occurrence: DE)
  Receive Date: 20220701
  Receipt Date: 20220701
  Transmission Date: 20221026
  Serious: Yes (Other)
  Sender: FDA-Public Use
  Company Number: DE-ARBOR PHARMACEUTICALS, LLC-DE-2022ARB001497

PATIENT

DRUGS (4)
  1. TRIPTODUR [Suspect]
     Active Substance: TRIPTORELIN
     Indication: Prostate cancer
     Dosage: STRENGTH:11.25 MG (11.25 MG,12 WK)
     Route: 030
     Dates: start: 2017
  2. TRIPTODUR [Suspect]
     Active Substance: TRIPTORELIN
  3. TRIPTODUR [Suspect]
     Active Substance: TRIPTORELIN
  4. XTANDI [Suspect]
     Active Substance: ENZALUTAMIDE
     Indication: Product used for unknown indication
     Dosage: UNK
     Dates: start: 202111

REACTIONS (11)
  - Metastases to pelvis [Unknown]
  - Injection site bruising [Recovered/Resolved]
  - Nausea [Unknown]
  - Back pain [Unknown]
  - Confusional state [Unknown]
  - Fluid retention [Recovering/Resolving]
  - Gait disturbance [Unknown]
  - Drug intolerance [Unknown]
  - Off label use [Unknown]
  - Wrong technique in product usage process [Unknown]
  - Drug ineffective [Unknown]

NARRATIVE: CASE EVENT DATE: 20180101
